FAERS Safety Report 4266866-3 (Version None)
Quarter: 2004Q1

REPORT INFORMATION
  Report Type: 
  Country: None (occurrence: None)
  Receive Date: 20040108
  Receipt Date: 20040108
  Transmission Date: 20041129
  Serious: Yes (Life-Threatening, Hospitalization)
  Sender: FDA-Public Use
  Company Number: None

PATIENT
  Age: 90 Year
  Sex: Female
  Weight: 54.4316 kg

DRUGS (1)
  1. TEQUIN [Suspect]
     Indication: PNEUMONIA BACTERIAL
     Dosage: 400 MG DAILY ORAL
     Route: 048
     Dates: start: 20031230, end: 20040106

REACTIONS (3)
  - DEPRESSED LEVEL OF CONSCIOUSNESS [None]
  - DIABETIC HYPEROSMOLAR COMA [None]
  - HYPERGLYCAEMIA [None]
